FAERS Safety Report 7679386-0 (Version None)
Quarter: 2011Q3

REPORT INFORMATION
  Report Type: 
  Country: None (occurrence: None)
  Receive Date: 20110809
  Receipt Date: 20110728
  Transmission Date: 20111222
  Serious: Yes (Hospitalization, Other)
  Sender: FDA-Public Use
  Company Number: CIP11001791

PATIENT
  Age: 67 Year
  Sex: Female

DRUGS (3)
  1. CALCIUM (CALCIUM) [Concomitant]
  2. VITAMIN D NOS (VITAMIN NOS) [Concomitant]
  3. RISEDRONATE SODIUM [Suspect]
     Indication: OSTEOPOROSIS
     Dosage: ORAL
     Route: 048

REACTIONS (13)
  - OSTEONECROSIS [None]
  - ARTHRALGIA [None]
  - BONE MARROW OEDEMA [None]
  - FALL [None]
  - GROIN PAIN [None]
  - PATHOLOGICAL FRACTURE [None]
  - FRACTURE NONUNION [None]
  - INADEQUATE OSTEOINTEGRATION [None]
  - FRACTURE DISPLACEMENT [None]
  - BONE FRAGMENTATION [None]
  - FEMUR FRACTURE [None]
  - BONE DISORDER [None]
  - PSEUDARTHROSIS [None]
